FAERS Safety Report 17072185 (Version 1)
Quarter: 2019Q4

REPORT INFORMATION
  Report Type: Spontaneous
  Country: PL (occurrence: PL)
  Receive Date: 20191125
  Receipt Date: 20191125
  Transmission Date: 20200122
  Serious: Yes (Other)
  Sender: FDA-Public Use
  Company Number: PL-BAYER-2019-209147

PATIENT
  Age: 42 Year
  Sex: Female

DRUGS (1)
  1. BETAFERON [Suspect]
     Active Substance: INTERFERON BETA-1B
     Indication: MULTIPLE SCLEROSIS
     Dosage: UNK
     Dates: start: 2005

REACTIONS (9)
  - Multiple sclerosis [None]
  - White blood cell count decreased [None]
  - Lymphocyte count decreased [None]
  - Mastectomy [None]
  - Multiple sclerosis relapse [None]
  - Breast cancer metastatic [None]
  - Breast reconstruction [None]
  - Atrial appendage resection [None]
  - Demyelination [None]

NARRATIVE: CASE EVENT DATE: 2011
